FAERS Safety Report 7743055-9 (Version None)
Quarter: 2011Q3

REPORT INFORMATION
  Report Type: 
  Country: None (occurrence: None)
  Receive Date: 20110901
  Receipt Date: 20110818
  Transmission Date: 20111222
  Serious: Yes (Hospitalization, Other)
  Sender: FDA-Public Use
  Company Number: 2011SP040376

PATIENT
  Age: 69 Year
  Sex: Male
  Weight: 89.8 kg

DRUGS (4)
  1. MIRALAX [Suspect]
     Indication: PRODUCT USED FOR UNKNOWN INDICATION
     Dosage: UNK;PO
     Route: 048
  2. DOCUSATE SODIUM [Suspect]
     Indication: PRODUCT USED FOR UNKNOWN INDICATION
  3. AXITINIB [Suspect]
     Indication: RENAL CANCER METASTATIC
     Dosage: 3 MG;BID;PO
     Route: 048
     Dates: start: 20110208, end: 20110703
  4. SENNA FRUIT [Suspect]
     Indication: PRODUCT USED FOR UNKNOWN INDICATION
     Dosage: UNK

REACTIONS (1)
  - DEHYDRATION [None]
